FAERS Safety Report 7593192-7 (Version None)
Quarter: 2011Q2

REPORT INFORMATION
  Report Type: 
  Country: None (occurrence: None)
  Receive Date: 20110628
  Receipt Date: 20110615
  Transmission Date: 20111010
  Serious: Yes (Other)
  Sender: FDA-Public Use
  Company Number: US-2011-10415

PATIENT
  Age: 62 Year
  Sex: Male

DRUGS (5)
  1. BUSULFEX [Suspect]
     Indication: STEM CELL TRANSPLANT
     Dosage: 3.2 MG/M2, DAILY DOSE, INTRAVENOUS
     Route: 042
  2. COLONY STIMULATING FACTORS [Concomitant]
  3. ETOPOSIDE [Concomitant]
  4. PHENYTOIN [Concomitant]
  5. CYCLOPHOSPHAMIDE [Suspect]
     Indication: STEM CELL TRANSPLANT
     Dosage: 50 MG/KG, DAILY DOSE

REACTIONS (1)
  - DISEASE RECURRENCE [None]
